FAERS Safety Report 9530692 (Version 1)
Quarter: 2013Q3

REPORT INFORMATION
  Report Type: Other
  Country: JP (occurrence: JP)
  Receive Date: 20130918
  Receipt Date: 20130918
  Transmission Date: 20140515
  Serious: Yes (Hospitalization)
  Sender: FDA-Public Use
  Company Number: JP-BRISTOL-MYERS SQUIBB COMPANY-19386556

PATIENT
  Age: 6 Decade
  Sex: Male

DRUGS (2)
  1. CARBOPLATIN INJECTION [Suspect]
     Indication: LUNG SQUAMOUS CELL CARCINOMA STAGE III
  2. PACLITAXEL [Suspect]
     Indication: LUNG SQUAMOUS CELL CARCINOMA STAGE III
     Dosage: INJECTION

REACTIONS (1)
  - Posterior reversible encephalopathy syndrome [Unknown]
